FAERS Safety Report 26145387 (Version 1)
Quarter: 2025Q4

REPORT INFORMATION
  Report Type: Spontaneous
  Country: US (occurrence: US)
  Receive Date: 20251211
  Receipt Date: 20251211
  Transmission Date: 20260117
  Serious: Yes (Other)
  Sender: JOHNSON AND JOHNSON
  Company Number: US-JNJFOC-20251203034

PATIENT

DRUGS (4)
  1. INVEGA [Suspect]
     Active Substance: PALIPERIDONE
     Indication: Schizophrenia
  2. INVEGA SUSTENNA [Suspect]
     Active Substance: PALIPERIDONE PALMITATE
     Indication: Schizophrenia
     Dates: start: 20251031
  3. INVEGA SUSTENNA [Suspect]
     Active Substance: PALIPERIDONE PALMITATE
  4. INVEGA SUSTENNA [Suspect]
     Active Substance: PALIPERIDONE PALMITATE

REACTIONS (10)
  - Mental impairment [Unknown]
  - Fluid retention [Unknown]
  - Pollakiuria [Unknown]
  - Headache [Unknown]
  - Hypoaesthesia [Unknown]
  - Weight increased [Unknown]
  - Insomnia [Unknown]
  - Hyperphagia [Unknown]
  - Intrusive thoughts [Unknown]
  - Nightmare [Unknown]
